FAERS Safety Report 6678619-7 (Version None)
Quarter: 2010Q2

REPORT INFORMATION
  Report Type: 
  Country: None (occurrence: None)
  Receive Date: 20100412
  Receipt Date: 20100412
  Transmission Date: 20101027
  Serious: Yes (Hospitalization)
  Sender: FDA-Public Use
  Company Number: None

PATIENT
  Age: 55 Year
  Sex: Female
  Weight: 59.5 kg

DRUGS (6)
  1. CYTARABINE [Suspect]
     Indication: ACUTE MYELOID LEUKAEMIA
     Dosage: 3000 MG/M2 IV BID DAY 1, 3, 5
     Dates: start: 20091119, end: 20091124
  2. FERROUS SULFATE TAB [Concomitant]
  3. POTASSIUM CHLORIDE [Concomitant]
  4. LORAZEPAM [Concomitant]
  5. DEXAMETHASONE [Concomitant]
  6. ONDANSETRON [Concomitant]

REACTIONS (3)
  - DERMATITIS CONTACT [None]
  - PRURITUS [None]
  - RASH [None]
